FAERS Safety Report 14599033 (Version 1)
Quarter: 2018Q1

REPORT INFORMATION
  Report Type: Spontaneous
  Country: US (occurrence: US)
  Receive Date: 20180302
  Receipt Date: 20180302
  Transmission Date: 20180509
  Serious: Yes (Other)
  Sender: FDA-Public Use
  Company Number: None

PATIENT
  Age: 67 Year
  Sex: Female
  Weight: 51.3 kg

DRUGS (6)
  1. PROLIA [Concomitant]
     Active Substance: DENOSUMAB
  2. VITAMIN K [Concomitant]
     Active Substance: PHYTONADIONE
  3. GENERIC PROLIA [Suspect]
     Active Substance: DENOSUMAB
     Indication: OSTEOPOROSIS
     Dosage: OTHER FREQUENCY:EVERY SIX MONTHS;?
  4. VITAMIN D [Concomitant]
     Active Substance: CHOLECALCIFEROL
  5. CALCIUM [Concomitant]
     Active Substance: CALCIUM
  6. PAXIL [Concomitant]
     Active Substance: PAROXETINE HYDROCHLORIDE

REACTIONS (7)
  - Gait disturbance [None]
  - Pain in extremity [None]
  - Back pain [None]
  - Arthralgia [None]
  - Sleep disorder [None]
  - Musculoskeletal pain [None]
  - Quality of life decreased [None]

NARRATIVE: CASE EVENT DATE: 20180106
